FAERS Safety Report 8488644-1 (Version None)
Quarter: 2012Q2

REPORT INFORMATION
  Report Type: 
  Country: None (occurrence: None)
  Receive Date: 20120626
  Receipt Date: 20120615
  Transmission Date: 20120825
  Serious: Yes (Death, Hospitalization, Other)
  Sender: FDA-Public Use
  Company Number: AUR-APL-2012-01642

PATIENT
  Age: 69 Year
  Sex: Male

DRUGS (9)
  1. GLIPIZIDE [Concomitant]
  2. ROSUVASTATIN (ROSUVASTAITN) [Concomitant]
  3. CLOPIDOGREL (CLOPIDOGREL) [Concomitant]
  4. OMEPRAZOLE [Concomitant]
  5. GABAPENTIN [Concomitant]
  6. METOPROLOL TARTRATE [Concomitant]
  7. LISINOPRIL [Concomitant]
  8. SERTRALINE HYDROCHLORIDE [Concomitant]
  9. METFFORMIN HYDROCHLORIDE [Suspect]
     Indication: PRODUCT USED FOR UNKNOWN INDICATION

REACTIONS (20)
  - VOMITING [None]
  - GASTROINTESTINAL SOUNDS ABNORMAL [None]
  - WHITE BLOOD CELL COUNT INCREASED [None]
  - HYPERHIDROSIS [None]
  - HYPERKALAEMIA [None]
  - ABDOMINAL PAIN [None]
  - LUNG INFILTRATION [None]
  - DRUG LEVEL ABOVE THERAPEUTIC [None]
  - NAUSEA [None]
  - ABDOMINAL RIGIDITY [None]
  - BLOOD CREATININE INCREASED [None]
  - ACIDOSIS [None]
  - BLOOD GLUCOSE INCREASED [None]
  - LACTIC ACIDOSIS [None]
  - FAECALOMA [None]
  - BLOOD UREA INCREASED [None]
  - OCCULT BLOOD POSITIVE [None]
  - SEPSIS [None]
  - ABDOMINAL TENDERNESS [None]
  - INTESTINAL DILATATION [None]
